FAERS Safety Report 9530203 (Version 2)
Quarter: 2015Q4

REPORT INFORMATION
  Report Type: Report from Study
  Country: US (occurrence: US)
  Receive Date: 20130917
  Receipt Date: 20151029
  Transmission Date: 20160305
  Serious: Yes (Hospitalization)
  Sender: FDA-Public Use
  Company Number: US-ROCHE-1277098

PATIENT
  Age: 48 Year
  Sex: Male

DRUGS (17)
  1. PROPARACAINE [Concomitant]
     Active Substance: PROPARACAINE
  2. FUROSEMIDE. [Suspect]
     Active Substance: FUROSEMIDE
     Indication: PRODUCT USED FOR UNKNOWN INDICATION
     Dosage: PO BID
     Route: 065
  3. HUMULIN 70/30 [Concomitant]
     Active Substance: INSULIN HUMAN
     Dosage: 100 UNITS BID
     Route: 065
  4. MINOXIDIL. [Concomitant]
     Active Substance: MINOXIDIL
     Dosage: PO BID
     Route: 048
  5. LUCENTIS [Suspect]
     Active Substance: RANIBIZUMAB
     Indication: DIABETIC RETINOPATHY
  6. PRAVASTATIN [Concomitant]
     Active Substance: PRAVASTATIN\PRAVASTATIN SODIUM
     Route: 048
  7. CALCIUM ACETATE. [Concomitant]
     Active Substance: CALCIUM ACETATE
     Route: 048
  8. LUCENTIS [Suspect]
     Active Substance: RANIBIZUMAB
     Indication: DIABETIC RETINAL OEDEMA
     Dosage: OU (BOTH EYES).
     Route: 050
  9. AMLODIPINE [Concomitant]
     Active Substance: AMLODIPINE BESYLATE
     Route: 048
  10. MINOXIDIL. [Concomitant]
     Active Substance: MINOXIDIL
     Route: 065
  11. LABETALOL [Concomitant]
     Active Substance: LABETALOL\LABETALOL HYDROCHLORIDE
     Route: 048
  12. LIDOCAINE. [Concomitant]
     Active Substance: LIDOCAINE
  13. PHENYLEPHRINE [Concomitant]
     Active Substance: PHENYLEPHRINE\PHENYLEPHRINE HYDROCHLORIDE
  14. DOXAZOSIN [Suspect]
     Active Substance: DOXAZOSIN\DOXAZOSIN MESYLATE
     Indication: PRODUCT USED FOR UNKNOWN INDICATION
     Route: 065
  15. ASPIRIN. [Concomitant]
     Active Substance: ASPIRIN
     Route: 048
  16. CLONIDINE. [Concomitant]
     Active Substance: CLONIDINE
     Route: 048
  17. TROPICAMIDE. [Concomitant]
     Active Substance: TROPICAMIDE

REACTIONS (6)
  - Localised infection [Unknown]
  - Vision blurred [Unknown]
  - Renal disorder [Unknown]
  - Fluid retention [Unknown]
  - Hypoxia [Unknown]
  - Vitreous floaters [Unknown]

NARRATIVE: CASE EVENT DATE: 20130617
